FAERS Safety Report 8252353-4 (Version None)
Quarter: 2012Q2

REPORT INFORMATION
  Report Type: 
  Country: None (occurrence: None)
  Receive Date: 20120402
  Receipt Date: 20110830
  Transmission Date: 20120825
  Serious: Yes (Other)
  Sender: FDA-Public Use
  Company Number: US-ABBOTT-11P-163-0804629-00

PATIENT
  Sex: Male
  Weight: 81 kg

DRUGS (6)
  1. AMITRIPTYLINE HCL [Concomitant]
     Indication: SLEEP DISORDER
     Dosage: DAILY DOSE:  UNKNOWN
     Route: 065
  2. JALYN [Concomitant]
     Indication: PRODUCT USED FOR UNKNOWN INDICATION
  3. ANDROGEL [Suspect]
     Indication: BLOOD TESTOSTERONE DECREASED
     Dosage: DAILY DOSE: 7.5 GRAM(S)
     Route: 062
     Dates: start: 20110220, end: 20110524
  4. RITALIN [Concomitant]
     Indication: ATTENTION DEFICIT/HYPERACTIVITY DISORDER
     Dosage: DAILY DOSE:  UNKNOWN
     Route: 065
  5. POTASSIUM [Concomitant]
     Indication: MUSCLE DISORDER
     Dosage: DAILY DOSE:  UNKNOWN
     Route: 065
  6. ANDROGEL [Suspect]
     Dosage: DAILY DOSE: 5 GRAM(S)
     Route: 062
     Dates: start: 20110525

REACTIONS (2)
  - DYSURIA [None]
  - PROSTATE CANCER [None]
